FAERS Safety Report 25031478 (Version 1)
Quarter: 2025Q1

REPORT INFORMATION
  Report Type: Spontaneous
  Country: NL (occurrence: NL)
  Receive Date: 20250303
  Receipt Date: 20250303
  Transmission Date: 20250409
  Serious: Yes (Other)
  Sender: AMGEN
  Company Number: NL-AMGEN-NLDSP2025039430

PATIENT

DRUGS (1)
  1. ADALIMUMAB [Suspect]
     Active Substance: ADALIMUMAB
     Indication: Crohn^s disease
     Dosage: 40 MILLIGRAM, Q2WK
     Route: 065

REACTIONS (21)
  - Oesophageal carcinoma [Unknown]
  - Malignant melanoma [Unknown]
  - Breast cancer [Unknown]
  - Drug specific antibody present [Unknown]
  - Eye disorder [Unknown]
  - Swelling [Unknown]
  - Loss of therapeutic response [Unknown]
  - Off label use [Unknown]
  - Skin lesion [Unknown]
  - Fatigue [Unknown]
  - COVID-19 [Unknown]
  - Lichen planus [Unknown]
  - Carbuncle [Unknown]
  - Dyspepsia [Unknown]
  - Upper respiratory tract infection [Unknown]
  - Gastrointestinal infection [Unknown]
  - Tooth infection [Unknown]
  - Urinary tract infection [Unknown]
  - Fungal infection [Unknown]
  - Injection site reaction [Unknown]
  - Hepatic enzyme increased [Unknown]
